FAERS Safety Report 7156645-1 (Version None)
Quarter: 2010Q4

REPORT INFORMATION
  Report Type: 
  Country: None (occurrence: None)
  Receive Date: 20101214
  Receipt Date: 20100521
  Transmission Date: 20110411
  Serious: No
  Sender: FDA-Public Use
  Company Number: US-ASTRAZENECA-2007UW06233

PATIENT
  Age: 82 Year
  Sex: Female
  Weight: 58.1 kg

DRUGS (6)
  1. CRESTOR [Suspect]
     Indication: BLOOD CHOLESTEROL
     Route: 048
     Dates: start: 20030101
  2. CRESTOR [Suspect]
     Indication: HYPERLIPIDAEMIA
     Route: 048
     Dates: start: 20030101
  3. CRESTOR [Suspect]
     Route: 048
     Dates: end: 20100402
  4. CRESTOR [Suspect]
     Route: 048
     Dates: end: 20100402
  5. VERELAN PM [Concomitant]
  6. ASCORBIC ACID [Concomitant]

REACTIONS (6)
  - ASTHENIA [None]
  - BURNING SENSATION [None]
  - HYPERTENSION [None]
  - PAIN IN EXTREMITY [None]
  - PRURITUS GENERALISED [None]
  - WRONG TECHNIQUE IN DRUG USAGE PROCESS [None]
